FAERS Safety Report 25599130 (Version 3)
Quarter: 2025Q4

REPORT INFORMATION
  Report Type: Spontaneous
  Country: EU (occurrence: EU)
  Receive Date: 20250724
  Receipt Date: 20251009
  Transmission Date: 20260118
  Serious: Yes (Hospitalization)
  Sender: ASCENDIS PHARMA
  Company Number: EU-ASCENDIS PHARMA-2025EU009860

PATIENT

DRUGS (7)
  1. YORVIPATH [Suspect]
     Active Substance: PALOPEGTERIPARATIDE
     Indication: Hypoparathyroidism
     Dosage: 18 MICROGRAM, QD
     Route: 058
     Dates: start: 20250429
  2. YORVIPATH [Suspect]
     Active Substance: PALOPEGTERIPARATIDE
     Dosage: ALTERNATED 21 ?G AND 24 ?G (EVERY OTHER DAY), QD
     Route: 058
     Dates: start: 20250520
  3. YORVIPATH [Suspect]
     Active Substance: PALOPEGTERIPARATIDE
     Dosage: 24 MICROGRAM, QD
     Route: 058
     Dates: start: 20250603
  4. YORVIPATH [Suspect]
     Active Substance: PALOPEGTERIPARATIDE
     Dosage: 27 MICROGRAM, QD
     Route: 058
     Dates: start: 20250610
  5. YORVIPATH [Suspect]
     Active Substance: PALOPEGTERIPARATIDE
     Dosage: 15 MICROGRAM
     Route: 065
  6. ALFACALCIDOL [Concomitant]
     Active Substance: ALFACALCIDOL
     Indication: Hypoparathyroidism
     Dosage: 1.25 MICROGRAM, BID
     Route: 065
  7. CALCIUM [Concomitant]
     Active Substance: CALCIUM
     Indication: Hypoparathyroidism
     Dosage: 600 MICROGRAM, 4 PER DAY
     Route: 065

REACTIONS (8)
  - Hypocalcaemia [Not Recovered/Not Resolved]
  - Headache [Not Recovered/Not Resolved]
  - Myalgia [Not Recovered/Not Resolved]
  - Arthralgia [Not Recovered/Not Resolved]
  - Blood phosphorus increased [Not Recovered/Not Resolved]
  - Intracranial calcification [Unknown]
  - Off label use [Unknown]
  - Condition aggravated [Unknown]

NARRATIVE: CASE EVENT DATE: 20250513
